FAERS Safety Report 8360106-1 (Version None)
Quarter: 2012Q2

REPORT INFORMATION
  Report Type: 
  Country: None (occurrence: None)
  Receive Date: 20120515
  Receipt Date: 20110608
  Transmission Date: 20120825
  Serious: No
  Sender: FDA-Public Use
  Company Number: US-ALEXION-A201100881

PATIENT
  Sex: Female
  Weight: 86.168 kg

DRUGS (7)
  1. LEVOTHYROXINE SODIUM [Concomitant]
     Indication: HYPOTHYROIDISM
     Dosage: 150 MG, MON-FRI
     Route: 048
  2. WARFARIN SODIUM [Concomitant]
     Indication: PAROXYSMAL NOCTURNAL HAEMOGLOBINURIA
     Dosage: 8 MG, QD
     Route: 048
  3. PAROXETINE [Concomitant]
     Indication: ANXIETY
     Dosage: 20 MG, QD
     Route: 048
  4. SOLIRIS [Suspect]
     Dosage: 900 MG, Q2W
     Route: 042
     Dates: start: 20070703
  5. SOLIRIS [Suspect]
     Indication: PAROXYSMAL NOCTURNAL HAEMOGLOBINURIA
     Dosage: 600 MG, QW
     Route: 042
     Dates: start: 20070605, end: 20070601
  6. LEVOTHYROXINE SODIUM [Concomitant]
     Dosage: 137 MG, SAT + SUN
     Route: 048
  7. TOPAMAX [Concomitant]
     Indication: MIGRAINE
     Dosage: 125 MG, BID
     Route: 048

REACTIONS (5)
  - FALL [None]
  - SKELETAL INJURY [None]
  - TRANSFUSION [None]
  - PAIN [None]
  - COSTOCHONDRITIS [None]
